FAERS Safety Report 7937122-4 (Version None)
Quarter: 2011Q4

REPORT INFORMATION
  Report Type: 
  Country: None (occurrence: None)
  Receive Date: 20111123
  Receipt Date: 20111114
  Transmission Date: 20120403
  Serious: Yes (Congenital Anomaly)
  Sender: FDA-Public Use
  Company Number: DE-TEVA-309151GER

PATIENT
  Age: 0 Year
  Sex: Male
  Weight: 54 kg

DRUGS (10)
  1. FOLIO FORTE [Concomitant]
     Route: 064
  2. FUSIDINSAURE [Concomitant]
     Route: 064
  3. METHYLDOPA [Suspect]
     Route: 064
  4. NEPRESOL [Concomitant]
     Route: 064
  5. CEFUROXIME [Concomitant]
     Route: 064
  6. PREDNISOLONE [Concomitant]
     Route: 064
  7. METOPROLOL TARTRATE [Suspect]
     Route: 064
  8. ACETYLSALICYLSAURE [Concomitant]
     Route: 064
  9. ALBUTEROL SULFATE AUTOHALER [Concomitant]
     Route: 064
  10. IMPFSTOFF GRIPPE (SAISONALE) [Concomitant]
     Route: 064

REACTIONS (1)
  - TALIPES [None]
